FAERS Safety Report 8824533 (Version 2)
Quarter: 2012Q4

REPORT INFORMATION
  Report Type: 
  Country: SI (occurrence: SI)
  Receive Date: 20121004
  Receipt Date: 20121010
  Transmission Date: 20130627
  Serious: Yes (Death)
  Sender: FDA-Public Use
  Company Number: SI-JNJFOC-20120912026

PATIENT
  Sex: Male
  Weight: 150 kg

DRUGS (8)
  1. REMICADE [Suspect]
     Indication: PSORIASIS
     Dosage: frequency at 0,2,6,8 week regime
     Route: 042
     Dates: start: 20100517
  2. ALL OTHER THERAPEUTICS [Concomitant]
     Dosage: 2x1 tablet a day
     Route: 065
  3. NOVOMIX [Concomitant]
     Dosage: 100 units in morning, 100 units in the noon and 80 units in the evening
     Route: 065
  4. GLUCOPHAGE [Concomitant]
     Dosage: 3 tablets/day
     Route: 065
  5. LASIX [Concomitant]
     Route: 065
  6. FOLACIN [Concomitant]
     Route: 065
  7. METHOTREXATE [Concomitant]
     Dosage: receiving it for the last year
     Route: 065
  8. ASPIRIN [Concomitant]
     Dosage: 100 unit unspecified
     Route: 065

REACTIONS (3)
  - Cardiac failure [Fatal]
  - Blood pressure decreased [Recovered/Resolved]
  - Infusion related reaction [Recovered/Resolved]
